FAERS Safety Report 26126512 (Version 2)
Quarter: 2025Q4

REPORT INFORMATION
  Report Type: Spontaneous
  Country: EU (occurrence: EU)
  Receive Date: 20251205
  Receipt Date: 20251221
  Transmission Date: 20260117
  Serious: Yes (Other)
  Sender: KYOWA
  Company Number: EU-KYOWAKIRIN-2025KK023007

PATIENT

DRUGS (1)
  1. CRYSVITA [Suspect]
     Active Substance: BUROSUMAB-TWZA
     Indication: Product used for unknown indication
     Dosage: UNK (SINCE THE PATIENT WAS 3 YEARS OLD)
     Route: 065

REACTIONS (2)
  - Nephrocalcinosis [Unknown]
  - Blood parathyroid hormone increased [Unknown]
